FAERS Safety Report 4331427-4 (Version None)
Quarter: 2004Q1

REPORT INFORMATION
  Report Type: 
  Country: None (occurrence: None)
  Receive Date: 20040331
  Receipt Date: 20040315
  Transmission Date: 20041129
  Serious: Yes (Death)
  Sender: FDA-Public Use
  Company Number: DE_040313221

PATIENT
  Age: 20 Year
  Sex: Male

DRUGS (1)
  1. ZYPREXA [Suspect]
     Indication: PSYCHOTIC DISORDER
     Dosage: 5 MG DAY
     Dates: start: 20031102, end: 20031215

REACTIONS (3)
  - COMPLETED SUICIDE [None]
  - FATIGUE [None]
  - HEADACHE [None]
